FAERS Safety Report 10485983 (Version 1)
Quarter: 2014Q3

REPORT INFORMATION
  Report Type: Spontaneous
  Country: US (occurrence: None)
  Receive Date: 20140930
  Receipt Date: 20140930
  Transmission Date: 20150326
  Serious: Yes (Other)
  Sender: FDA-Public Use
  Company Number: None

PATIENT
  Age: 34 Year
  Sex: Female
  Weight: 70.76 kg

DRUGS (2)
  1. CYMBALTA [Suspect]
     Active Substance: DULOXETINE HYDROCHLORIDE
     Indication: DEPRESSION
     Dosage: 2 ??3- 4 YEARS
     Route: 048
  2. CYMBALTA [Suspect]
     Active Substance: DULOXETINE HYDROCHLORIDE
     Indication: ANXIETY
     Dosage: 2 ??3- 4 YEARS
     Route: 048

REACTIONS (8)
  - Diarrhoea [None]
  - Tinnitus [None]
  - Drug withdrawal syndrome [None]
  - Paraesthesia [None]
  - Decreased appetite [None]
  - Malaise [None]
  - Dizziness [None]
  - Vomiting [None]
